FAERS Safety Report 8137508-1 (Version None)
Quarter: 2012Q1

REPORT INFORMATION
  Report Type: 
  Country: None (occurrence: None)
  Receive Date: 20120215
  Receipt Date: 20120207
  Transmission Date: 20120608
  Serious: Yes (Other)
  Sender: FDA-Public Use
  Company Number: US-US-EMD SERONO, INC.-7110523

PATIENT
  Sex: Female
  Weight: 65 kg

DRUGS (11)
  1. REBIF [Suspect]
     Indication: MULTIPLE SCLEROSIS
     Route: 058
     Dates: start: 20050104
  2. NAPROXEN (ALEVE) [Concomitant]
     Indication: PAIN
     Route: 048
  3. CYMBALTA [Concomitant]
     Route: 048
  4. CLARINEX [Concomitant]
     Route: 048
  5. CYANOCOBALAMIN [Concomitant]
     Route: 030
  6. AMITRIPTYLINE HCL [Concomitant]
     Route: 048
  7. GABAPENTIN [Concomitant]
     Route: 048
  8. SUMATRIPTAN SUCCINATE [Concomitant]
     Indication: MIGRAINE
     Route: 048
  9. NAPROXEN (ALEVE) [Concomitant]
     Indication: HEADACHE
  10. BUSPIRONE HCL [Concomitant]
     Route: 048
  11. VITAMIN D [Concomitant]
     Route: 048

REACTIONS (3)
  - AUTOIMMUNE THYROIDITIS [None]
  - INJECTION SITE REACTION [None]
  - PLATELET COUNT DECREASED [None]
